FAERS Safety Report 12299810 (Version 1)
Quarter: 2016Q2

REPORT INFORMATION
  Report Type: Spontaneous
  Country: GB (occurrence: GB)
  Receive Date: 20160425
  Receipt Date: 20160425
  Transmission Date: 20160815
  Serious: Yes (Other)
  Sender: FDA-Public Use
  Company Number: GB-DRREDDYS-GER/UKI/16/0078806

PATIENT
  Age: 3 Year
  Sex: Female

DRUGS (1)
  1. OMEPRAZOLE CAPSULES, DR. REDDY^S [Suspect]
     Active Substance: OMEPRAZOLE
     Indication: GASTROOESOPHAGEAL REFLUX DISEASE
     Route: 064

REACTIONS (3)
  - Dyschezia [Unknown]
  - Dysuria [Unknown]
  - Foetal exposure during pregnancy [Unknown]
